FAERS Safety Report 8379230-2 (Version None)
Quarter: 2012Q2

REPORT INFORMATION
  Report Type: 
  Country: None (occurrence: None)
  Receive Date: 20120523
  Receipt Date: 20120516
  Transmission Date: 20120825
  Serious: Yes (Other)
  Sender: FDA-Public Use
  Company Number: JP-BAYER-2012-048859

PATIENT
  Age: 68 Year
  Sex: Male
  Weight: 52 kg

DRUGS (22)
  1. NEXAVAR [Suspect]
     Dosage: DAILY DOSE 400 MG
     Dates: start: 20120201
  2. CISPLATIN [Suspect]
     Indication: REGIONAL CHEMOTHERAPY
     Dosage: DAILY DOSE 33 MG
     Route: 013
     Dates: start: 20120104, end: 20120104
  3. CISPLATIN [Suspect]
     Dosage: DAILY DOSE 33 MG
     Route: 013
     Dates: start: 20120111, end: 20120111
  4. FLUOROURACIL [Suspect]
     Dosage: DAILY DOSE 554.4 MG
     Route: 013
     Dates: start: 20120111, end: 20120115
  5. SILECE [Concomitant]
     Dosage: DAILY DOSE 2 MG
     Route: 048
  6. CISPLATIN [Suspect]
     Dosage: DAILY DOSE 33 MG
     Route: 013
     Dates: start: 20120215, end: 20120215
  7. URSO 250 [Concomitant]
     Dosage: DAILY DOSE 300 MG
     Route: 048
  8. CISPLATIN [Suspect]
     Dosage: DAILY DOSE 33 MG
     Route: 013
     Dates: start: 20120208, end: 20120208
  9. FLUOROURACIL [Suspect]
     Dosage: DAILY DOSE 554.4 MG
     Route: 013
     Dates: start: 20120208, end: 20120212
  10. GLYBURIDE [Concomitant]
     Dosage: DAILY DOSE 1.25 MG
     Route: 048
  11. NEXAVAR [Suspect]
     Indication: HEPATIC NEOPLASM MALIGNANT
     Dosage: DAILY DOSE 800 MG
     Route: 048
     Dates: start: 20120104, end: 20120131
  12. FLUOROURACIL [Suspect]
     Dosage: DAILY DOSE 554.4 MG
     Route: 013
     Dates: start: 20120215, end: 20120219
  13. MUCOSTA [Concomitant]
     Indication: PROPHYLAXIS
     Dosage: DAILY DOSE 300 MG
     Route: 048
  14. EMEND [Concomitant]
     Indication: PREMEDICATION
     Dosage: DAILY DOSE 125 MG
     Route: 048
     Dates: start: 20120104, end: 20120104
  15. EMEND [Concomitant]
     Dosage: DAILY DOSE 125 MG
     Route: 048
     Dates: start: 20120208, end: 20120208
  16. FLUOROURACIL [Suspect]
     Indication: REGIONAL CHEMOTHERAPY
     Dosage: DAILY DOSE 554.4 MG
     Route: 013
     Dates: start: 20120104, end: 20120108
  17. LIVACT [Concomitant]
     Dosage: DAILY DOSE 12.45 G
     Route: 048
  18. ALDACTONE [Concomitant]
     Dosage: DAILY DOSE 50 MG
     Route: 048
  19. FUROSEMIDE [Concomitant]
     Dosage: DAILY DOSE 20 MG
     Route: 048
  20. LANSOPRAZOLE [Concomitant]
     Indication: PROPHYLAXIS
     Dosage: DAILY DOSE 30 MG
     Route: 048
     Dates: end: 20120306
  21. UREPEARL [Concomitant]
     Indication: PROPHYLAXIS
     Dosage: UNK
     Route: 061
     Dates: start: 20111220
  22. EMEND [Concomitant]
     Dosage: DAILY DOSE 125 MG
     Route: 048
     Dates: start: 20120111, end: 20120111

REACTIONS (8)
  - GASTRITIS EROSIVE [None]
  - DUODENAL ULCER [None]
  - AMYLASE INCREASED [None]
  - PLATELET COUNT DECREASED [None]
  - LIPASE DECREASED [None]
  - ABDOMINAL PAIN UPPER [None]
  - HYPERBILIRUBINAEMIA [None]
  - NEUTROPHIL COUNT DECREASED [None]
